FAERS Safety Report 6977331-4 (Version None)
Quarter: 2010Q3

REPORT INFORMATION
  Report Type: 
  Country: None (occurrence: None)
  Receive Date: 20100910
  Receipt Date: 20100901
  Transmission Date: 20110219
  Serious: Yes (Other)
  Sender: FDA-Public Use
  Company Number: PHHY2005BR02159

PATIENT
  Sex: Female

DRUGS (2)
  1. DIOVAN [Suspect]
     Indication: HYPERTENSION
     Dosage: 80 MG, QD
     Route: 048
     Dates: start: 20040201, end: 20050601
  2. DIOVAN [Suspect]
     Dosage: 160 MG DAILY
     Route: 048
     Dates: start: 20040201, end: 20050601

REACTIONS (2)
  - BLOOD PRESSURE INCREASED [None]
  - VEIN DISORDER [None]
